FAERS Safety Report 5201246-5 (Version None)
Quarter: 2007Q1

REPORT INFORMATION
  Report Type: 
  Country: None (occurrence: None)
  Receive Date: 20070103
  Receipt Date: 20061215
  Transmission Date: 20070707
  Serious: Yes (Hospitalization)
  Sender: FDA-Public Use
  Company Number: FSC_0019_2006

PATIENT
  Age: 36 Year
  Sex: Female

DRUGS (2)
  1. ISOPTIN [Suspect]
     Indication: TACHYCARDIA
     Dosage: 120 MG QD PO
     Route: 048
     Dates: start: 19990601, end: 20061212
  2. ISOPTIN [Suspect]
     Indication: TACHYCARDIA
     Dosage: 240 MG QD PO
     Route: 048
     Dates: start: 20061213

REACTIONS (4)
  - CONDITION AGGRAVATED [None]
  - DRUG EXPOSURE DURING PREGNANCY [None]
  - PREGNANCY [None]
  - TACHYCARDIA [None]
